FAERS Safety Report 5377736-1 (Version None)
Quarter: 2007Q3

REPORT INFORMATION
  Report Type: 
  Country: None (occurrence: None)
  Receive Date: 20070703
  Receipt Date: 20070625
  Transmission Date: 20080115
  Serious: No
  Sender: FDA-Public Use
  Company Number: JP-ALLERGAN-0706229US

PATIENT
  Age: 61 Year
  Sex: Female

DRUGS (3)
  1. BOTOX INJECTION 100 [Suspect]
     Indication: BLEPHAROSPASM
     Dosage: 8 UNITS, SINGLE
     Route: 030
     Dates: start: 20040801, end: 20040801
  2. BOTOX INJECTION 100 [Suspect]
     Dosage: 8 UNITS, SINGLE
     Route: 030
     Dates: start: 20060401, end: 20060401
  3. BOTOX INJECTION 100 [Suspect]
     Dosage: 8 UNITS, SINGLE
     Route: 030
     Dates: start: 20061115, end: 20061115

REACTIONS (6)
  - CONJUNCTIVAL HYPERAEMIA [None]
  - CORNEAL EPITHELIUM DEFECT [None]
  - CORNEAL EROSION [None]
  - EYE PAIN [None]
  - KERATITIS [None]
  - LAGOPHTHALMOS [None]
